FAERS Safety Report 14898634 (Version 1)
Quarter: 2018Q2

REPORT INFORMATION
  Report Type: Spontaneous
  Country: GB (occurrence: GB)
  Receive Date: 20180515
  Receipt Date: 20180515
  Transmission Date: 20180711
  Serious: Yes (Life-Threatening, Hospitalization)
  Sender: FDA-Public Use
  Company Number: GB-LUNDBECK-DKLU1086506

PATIENT
  Age: 24 Year
  Sex: Male

DRUGS (3)
  1. LAMOTRIGINE. [Suspect]
     Active Substance: LAMOTRIGINE
     Indication: EPILEPSY
     Route: 065
  2. LAMOTRIGINE. [Suspect]
     Active Substance: LAMOTRIGINE
     Route: 065
  3. ONFI [Suspect]
     Active Substance: CLOBAZAM
     Indication: EPILEPTIC AURA
     Dosage: AS REQUIRED
     Route: 065

REACTIONS (4)
  - Epilepsy [Unknown]
  - Feeling of despair [Unknown]
  - Suicide attempt [Unknown]
  - Overdose [Unknown]
